FAERS Safety Report 8013133-8 (Version None)
Quarter: 2011Q4

REPORT INFORMATION
  Report Type: 
  Country: None (occurrence: None)
  Receive Date: 20111229
  Receipt Date: 20111222
  Transmission Date: 20120403
  Serious: Yes (Other)
  Sender: FDA-Public Use
  Company Number: SE-CEPHALON-2011006337

PATIENT
  Sex: Female

DRUGS (2)
  1. DESOGESTREL AND ETHINYL ESTRADIOL [Concomitant]
  2. MODAFANIL [Suspect]
     Route: 048
     Dates: start: 20111109

REACTIONS (1)
  - THROMBOCYTOPENIA [None]
